FAERS Safety Report 7628916-3 (Version None)
Quarter: 2011Q3

REPORT INFORMATION
  Report Type: 
  Country: None (occurrence: None)
  Receive Date: 20110722
  Receipt Date: 20110715
  Transmission Date: 20111222
  Serious: Yes (Death)
  Sender: FDA-Public Use
  Company Number: DE-PFIZER INC-2011161786

PATIENT
  Age: 83 Year
  Sex: Female

DRUGS (2)
  1. ZOMETA [Concomitant]
  2. SUTENT [Suspect]
     Indication: METASTATIC RENAL CELL CARCINOMA
     Dosage: 37.5 MG, 1X/DAY CONTINOUSLY
     Dates: start: 20110208, end: 20110708

REACTIONS (1)
  - DEATH [None]
